FAERS Safety Report 7330191-4 (Version None)
Quarter: 2011Q1

REPORT INFORMATION
  Report Type: 
  Country: None (occurrence: None)
  Receive Date: 20110303
  Receipt Date: 20100914
  Transmission Date: 20110831
  Serious: Yes (Hospitalization)
  Sender: FDA-Public Use
  Company Number: FR-MERCK-1009FRA00049

PATIENT
  Age: 72 Year
  Sex: Male
  Weight: 67 kg

DRUGS (13)
  1. AMLODIPINE BESYLATE [Concomitant]
     Route: 048
     Dates: start: 20070511
  2. CHOLECALCIFEROL [Concomitant]
     Route: 048
     Dates: start: 20100713
  3. OXAZEPAM [Concomitant]
     Route: 048
     Dates: start: 20091127
  4. SOTALOL HYDROCHLORIDE [Concomitant]
     Route: 048
     Dates: start: 20020730
  5. GLYCERIN AND MINERAL OIL AND PETROLATUM, WHITE [Concomitant]
     Route: 061
     Dates: start: 20091217
  6. MARAVIROC [Concomitant]
     Route: 048
     Dates: start: 20100713
  7. CLOPIDOGREL BISULFATE [Concomitant]
     Route: 048
     Dates: start: 20090629
  8. CLONAZEPAM [Concomitant]
     Route: 048
     Dates: start: 19990208
  9. ROSUVASTATIN CALCIUM [Concomitant]
     Route: 048
     Dates: start: 20090622
  10. EMTRICITABINE AND TENOFOVIR DISOPROXIL FUMARATE [Concomitant]
     Route: 048
     Dates: start: 20100713
  11. ISENTRESS [Suspect]
     Indication: HIV INFECTION
     Route: 048
     Dates: start: 20100713
  12. ESCITALOPRAM OXALATE [Concomitant]
     Route: 048
     Dates: start: 20091217
  13. TRAMADOL HYDROCHLORIDE [Concomitant]
     Route: 048
     Dates: start: 20100614

REACTIONS (1)
  - CEREBROVASCULAR ACCIDENT [None]
